FAERS Safety Report 7407820-X (Version None)
Quarter: 2011Q2

REPORT INFORMATION
  Report Type: 
  Country: None (occurrence: None)
  Receive Date: 20110412
  Receipt Date: 20110404
  Transmission Date: 20111010
  Serious: No
  Sender: FDA-Public Use
  Company Number: PHHY2011US28644

PATIENT
  Age: 80 Year
  Sex: Male
  Weight: 80.7 kg

DRUGS (4)
  1. EXCEDRIN (MIGRAINE) [Concomitant]
  2. VERAPAMIL [Concomitant]
  3. VIAGRA [Concomitant]
  4. TASIGNA [Suspect]
     Dosage: 300 MG, Q12H
     Route: 048
     Dates: start: 20110201

REACTIONS (1)
  - RASH [None]
